FAERS Safety Report 5076652-2 (Version None)
Quarter: 2006Q3

REPORT INFORMATION
  Report Type: 
  Country: None (occurrence: None)
  Receive Date: 20060810
  Receipt Date: 20060731
  Transmission Date: 20061208
  Serious: Yes (Hospitalization)
  Sender: FDA-Public Use
  Company Number: US-BRISTOL-MYERS SQUIBB COMPANY-13460357

PATIENT
  Age: 56 Year
  Sex: Female

DRUGS (3)
  1. CISPLATIN [Suspect]
     Indication: CERVIX CARCINOMA
  2. FLUOROURACIL [Suspect]
     Indication: CERVIX CARCINOMA
  3. RADIATION THERAPY [Suspect]
     Indication: CERVIX CARCINOMA
     Dates: start: 19890701

REACTIONS (4)
  - ABDOMINAL ABSCESS [None]
  - OSTEOMYELITIS [None]
  - OSTEONECROSIS [None]
  - RADIATION INJURY [None]
